FAERS Safety Report 16457574 (Version 1)
Quarter: 2019Q2

REPORT INFORMATION
  Report Type: Spontaneous
  Country: ES (occurrence: ES)
  Receive Date: 20190620
  Receipt Date: 20190620
  Transmission Date: 20190711
  Serious: Yes (Other)
  Sender: FDA-Public Use
  Company Number: PHHY2019ES138269

PATIENT
  Age: 32 Year
  Sex: Female
  Weight: 48.8 kg

DRUGS (4)
  1. COLIRCUSI CICLOPLEJICO [Suspect]
     Active Substance: CYCLOPENTOLATE HYDROCHLORIDE
     Indication: OPHTHALMOLOGICAL EXAMINATION
     Dosage: ONE DROP IN EVERY EYE ONE HOUR BEFORE THE CONSULTATION, ONE DROP IN EVERY EYE A HALF HOUR BEFORE THE
     Route: 047
  2. AERIUS [Concomitant]
     Indication: SEASONAL ALLERGY
     Dosage: UN COMPRIMIDO UNA VEZ AL D?A
     Route: 065
     Dates: start: 20190524
  3. AVAMYS [Concomitant]
     Active Substance: FLUTICASONE FUROATE
     Indication: SEASONAL ALLERGY
     Dosage: UNK
     Route: 065
     Dates: start: 20190524, end: 20190524
  4. NEOBRUFEN [Concomitant]
     Active Substance: IBUPROFEN
     Indication: HEADACHE
     Dosage: UNK
     Route: 065
     Dates: start: 20190525, end: 20190525

REACTIONS (19)
  - Dry mouth [Recovered/Resolved]
  - Confusional state [Recovered/Resolved]
  - Photophobia [Recovered/Resolved]
  - Tachycardia [Recovered/Resolved]
  - Mydriasis [Recovered/Resolved]
  - Vision blurred [Recovered/Resolved]
  - Paraesthesia [Recovered/Resolved]
  - Gait disturbance [Recovered/Resolved]
  - Initial insomnia [Recovered/Resolved]
  - Hyperresponsive to stimuli [Recovering/Resolving]
  - Headache [Recovered/Resolved]
  - Agitation [Recovered/Resolved]
  - Eye pain [Recovered/Resolved]
  - Fatigue [Recovering/Resolving]
  - Dizziness [Recovered/Resolved]
  - Somnolence [Recovered/Resolved]
  - Mouth swelling [Recovered/Resolved]
  - Speech disorder [Recovered/Resolved]
  - Amnesia [Recovered/Resolved]

NARRATIVE: CASE EVENT DATE: 20190528
